FAERS Safety Report 5964654-0 (Version None)
Quarter: 2008Q4

REPORT INFORMATION
  Report Type: 
  Country: None (occurrence: None)
  Receive Date: 20081125
  Receipt Date: 20081118
  Transmission Date: 20090506
  Serious: Yes (Hospitalization, Other)
  Sender: FDA-Public Use
  Company Number: US-BAYER-200838903NA

PATIENT
  Age: 51 Year
  Sex: Female
  Weight: 145 kg

DRUGS (5)
  1. MIRENA [Suspect]
     Indication: VAGINAL HAEMORRHAGE
     Route: 015
     Dates: start: 20080901
  2. GLUCOVANCE [Concomitant]
     Indication: DRUG USE FOR UNKNOWN INDICATION
  3. LEXAPRO [Concomitant]
     Indication: DRUG USE FOR UNKNOWN INDICATION
  4. NEURONTIN [Concomitant]
     Indication: DRUG USE FOR UNKNOWN INDICATION
  5. BLOOD PRESSURE MEDICATION (NOS) [Concomitant]
     Indication: BLOOD PRESSURE ABNORMAL

REACTIONS (10)
  - DIZZINESS [None]
  - GAIT DISTURBANCE [None]
  - HEADACHE [None]
  - LOSS OF CONSCIOUSNESS [None]
  - NAUSEA [None]
  - PAIN IN EXTREMITY [None]
  - SPEECH DISORDER [None]
  - THROMBOSIS [None]
  - VAGINAL HAEMORRHAGE [None]
  - WEIGHT INCREASED [None]
